FAERS Safety Report 4405204-X (Version None)
Quarter: 2004Q3

REPORT INFORMATION
  Report Type: 
  Country: None (occurrence: None)
  Receive Date: 20040722
  Receipt Date: 20040722
  Transmission Date: 20050211
  Serious: No
  Sender: FDA-Public Use
  Company Number: None

PATIENT
  Age: 42 Year
  Sex: Male

DRUGS (2)
  1. CPT-11 (IRINOTECAN) [Suspect]
     Indication: GLIOBLASTOMA MULTIFORME
     Dosage: EVERY 3 WKS 350 MG/M2
     Dates: start: 20030828, end: 20040603
  2. THALIDOMIDE [Suspect]
     Indication: GLIOBLASTOMA MULTIFORME
     Dosage: 400 MG DAILY
     Dates: start: 20030828, end: 20040621

REACTIONS (7)
  - ASTHENIA [None]
  - DIFFICULTY IN WALKING [None]
  - HEADACHE [None]
  - HEMIPARESIS [None]
  - NAUSEA [None]
  - PYREXIA [None]
  - VOMITING [None]
